FAERS Safety Report 9728229 (Version 1)
Quarter: 2013Q4

REPORT INFORMATION
  Report Type: Spontaneous
  Country: FR (occurrence: FR)
  Receive Date: 20131204
  Receipt Date: 20131204
  Transmission Date: 20140711
  Serious: Yes (Hospitalization)
  Sender: FDA-Public Use
  Company Number: FR-JNJFOC-20131117649

PATIENT
  Age: 75 Year
  Sex: Male

DRUGS (6)
  1. HALDOL [Suspect]
     Indication: PSYCHOTIC DISORDER
     Dosage: 10DROPS A DAY
     Route: 048
     Dates: end: 201308
  2. MIRTAZAPINE [Concomitant]
     Route: 065
  3. FLUDEX [Concomitant]
     Route: 065
  4. AMLOR [Concomitant]
     Route: 065
  5. DIFFU K [Concomitant]
     Route: 065
  6. KARDEGIC [Concomitant]
     Route: 065

REACTIONS (3)
  - Extrapyramidal disorder [Recovered/Resolved]
  - Pneumonia [Recovered/Resolved]
  - Fall [Unknown]
